FAERS Safety Report 10102082 (Version 1)
Quarter: 2014Q2

REPORT INFORMATION
  Report Type: Spontaneous
  Country: US (occurrence: None)
  Receive Date: 20140423
  Receipt Date: 20140423
  Transmission Date: 20141212
  Serious: Yes (Life-Threatening)
  Sender: FDA-Public Use
  Company Number: None

PATIENT
  Age: 57 Year
  Sex: Female
  Weight: 74 kg

DRUGS (13)
  1. FLUOXETINE 40MG TEVA [Suspect]
     Indication: PRODUCT USED FOR UNKNOWN INDICATION
     Dosage: 1 TABLET, QHS/BEDTIME, ORAL
  2. ZOFRAN 4MG [Concomitant]
  3. ASA 81MG PO DAILY [Concomitant]
  4. BYSTOLIC 10MG [Concomitant]
  5. DILUADID 4MG [Concomitant]
  6. LAMICTAL 100MG [Concomitant]
  7. LISINOPRIL 10MG [Concomitant]
  8. LOMOTIL 2MG [Concomitant]
  9. MORPHINE 20MG [Concomitant]
  10. OMEPRAZOLE 20MG TWICE DAILY [Concomitant]
  11. FLUOXETINE 40MG TEVA [Concomitant]
  12. ALPRZOLAM 2MG [Concomitant]
  13. ONDANSETRON 2MG [Concomitant]

REACTIONS (11)
  - Nausea [None]
  - Vomiting [None]
  - Abdominal pain [None]
  - Decreased appetite [None]
  - Tremor [None]
  - Electrocardiogram T wave abnormal [None]
  - Blood potassium increased [None]
  - Ventricular tachycardia [None]
  - Unresponsive to stimuli [None]
  - Meningitis [None]
  - Refusal of treatment by patient [None]
